FAERS Safety Report 14967696 (Version 1)
Quarter: 2018Q2

REPORT INFORMATION
  Report Type: Spontaneous
  Country: US (occurrence: US)
  Receive Date: 20180511
  Receipt Date: 20180511
  Transmission Date: 20180711
  Serious: No
  Sender: FDA-Public Use
  Company Number: None

PATIENT
  Age: 37 Year
  Sex: Female
  Weight: 42.3 kg

DRUGS (6)
  1. LORAZEPAM. [Concomitant]
     Active Substance: LORAZEPAM
  2. VITAMIN B1 [Concomitant]
     Active Substance: THIAMINE HYDROCHLORIDE
  3. TRAMADOL. [Concomitant]
     Active Substance: TRAMADOL
  4. ADVIL [Concomitant]
     Active Substance: IBUPROFEN
  5. CLARITIN [Concomitant]
     Active Substance: LORATADINE
  6. VOTRIENT [Suspect]
     Active Substance: PAZOPANIB HYDROCHLORIDE
     Indication: RENAL CANCER
     Route: 048
     Dates: start: 20180313, end: 20180510

REACTIONS (3)
  - Peripheral swelling [None]
  - Stomatitis [None]
  - Diarrhoea [None]

NARRATIVE: CASE EVENT DATE: 20180417
